FAERS Safety Report 19094039 (Version 1)
Quarter: 2021Q2

REPORT INFORMATION
  Report Type: Report from Study
  Country: US (occurrence: US)
  Receive Date: 20210405
  Receipt Date: 20210405
  Transmission Date: 20210717
  Serious: Yes (Other)
  Sender: FDA-Public Use
  Company Number: US-BAUSCH-BL-2021-011598

PATIENT
  Age: 79 Year
  Sex: Female

DRUGS (2)
  1. BEXAROTENE. [Suspect]
     Active Substance: BEXAROTENE
     Indication: PRODUCT USED FOR UNKNOWN INDICATION
     Route: 048
  2. GABAPENTIN. [Concomitant]
     Active Substance: GABAPENTIN
     Indication: PRODUCT USED FOR UNKNOWN INDICATION
     Dosage: 2?3 PILLS IN A DAY

REACTIONS (3)
  - Inability to afford medication [Unknown]
  - Insurance issue [Unknown]
  - Intraductal proliferative breast lesion [Unknown]
